FAERS Safety Report 17806466 (Version 1)
Quarter: 2020Q2

REPORT INFORMATION
  Report Type: Spontaneous
  Country: US (occurrence: US)
  Receive Date: 20200520
  Receipt Date: 20200520
  Transmission Date: 20200714
  Serious: Yes (Other)
  Sender: FDA-Public Use
  Company Number: US-ABBVIE-20K-056-3384032-00

PATIENT
  Age: 59 Year
  Sex: Male

DRUGS (4)
  1. OLANZAPINE. [Suspect]
     Active Substance: OLANZAPINE
     Indication: BIPOLAR DISORDER
     Route: 065
  2. OLANZAPINE. [Suspect]
     Active Substance: OLANZAPINE
     Indication: SCHIZOPHRENIA
  3. VALPROIC ACID. [Suspect]
     Active Substance: VALPROIC ACID
     Indication: SCHIZOPHRENIA
  4. VALPROIC ACID. [Suspect]
     Active Substance: VALPROIC ACID
     Indication: BIPOLAR DISORDER
     Route: 065

REACTIONS (9)
  - Hepatocellular injury [Recovering/Resolving]
  - Lethargy [Recovering/Resolving]
  - Ammonia increased [Recovering/Resolving]
  - Hyperammonaemic encephalopathy [Recovering/Resolving]
  - Hepatic steatosis [Recovering/Resolving]
  - Mental status changes [Recovered/Resolved]
  - Anaemia [Recovering/Resolving]
  - Hyperglycaemia [Recovering/Resolving]
  - Hyperammonaemia [Recovering/Resolving]
